FAERS Safety Report 9052897 (Version 1)
Quarter: 2013Q1

REPORT INFORMATION
  Report Type: Spontaneous
  Country: ES (occurrence: ES)
  Receive Date: 20130207
  Receipt Date: 20130207
  Transmission Date: 20140127
  Serious: Yes (Hospitalization)
  Sender: FDA-Public Use
  Company Number: ES-MYLANLABS-2013S1002214

PATIENT
  Age: 66 Year
  Sex: Male

DRUGS (6)
  1. IMATINIB [Suspect]
     Indication: GASTROINTESTINAL STROMAL TUMOUR
     Dosage: 800MG/24H
     Route: 065
     Dates: start: 2010
  2. IMATINIB [Interacting]
     Indication: GASTROINTESTINAL STROMAL TUMOUR
     Dosage: 400MG/24H
     Route: 065
     Dates: start: 2010
  3. FENTANYL TRANSDERMAL SYSTEM [Interacting]
     Indication: ABDOMINAL PAIN
     Dosage: 12 MICROG/72H [SIC]
     Route: 062
     Dates: start: 20101123
  4. MAGNESIUM [Concomitant]
     Indication: MINERAL SUPPLEMENTATION
     Route: 065
  5. OMEPRAZOLE [Concomitant]
     Dosage: 20MG/24H
     Route: 065
  6. TAMSULOSIN [Concomitant]
     Dosage: 0.4MG/24H
     Route: 065

REACTIONS (4)
  - Hepatic encephalopathy [Not Recovered/Not Resolved]
  - Hepatotoxicity [Unknown]
  - Drug interaction [Unknown]
  - Constipation [Unknown]
